FAERS Safety Report 26080121 (Version 1)
Quarter: 2025Q4

REPORT INFORMATION
  Report Type: Report from Study
  Country: US (occurrence: US)
  Receive Date: 20251124
  Receipt Date: 20251124
  Transmission Date: 20260117
  Serious: Yes (Other)
  Sender: ALEXION PHARMACEUTICALS
  Company Number: A202212802

PATIENT
  Age: 45 Year
  Sex: Female

DRUGS (1)
  1. STRENSIQ [Suspect]
     Active Substance: ASFOTASE ALFA
     Indication: Phosphorus metabolism disorder
     Dosage: INJECT 98 MG THREE TIMES PER WEEK
     Route: 065

REACTIONS (5)
  - Cataract [Unknown]
  - Walking distance test abnormal [Unknown]
  - Dizziness [Unknown]
  - COVID-19 [Unknown]
  - Diplopia [Unknown]
